FAERS Safety Report 9805946 (Version 3)
Quarter: 2014Q1

REPORT INFORMATION
  Report Type: Report from Study
  Country: IL (occurrence: IL)
  Receive Date: 20140109
  Receipt Date: 20140225
  Transmission Date: 20141002
  Serious: Yes (Hospitalization)
  Sender: FDA-Public Use
  Company Number: PHHY2013IL043103

PATIENT
  Age: 59 Year
  Sex: Male

DRUGS (4)
  1. SANDOSTATIN LAR [Suspect]
     Indication: CARCINOID TUMOUR
     Dosage: 60 MG, Q4 W
     Route: 030
     Dates: start: 20121210
  2. SANDOSTATIN LAR [Suspect]
     Dosage: 30 MG, Q4 W
     Route: 030
     Dates: start: 20130429
  3. SANDOSTATIN LAR [Suspect]
     Dosage: 60 MG, EVERY 4 WEEKS
     Route: 030
  4. SANDOSTATIN LAR [Suspect]
     Dosage: 60 MG, EVERY 4 WEEKS
     Dates: start: 20131209

REACTIONS (6)
  - Body temperature increased [Unknown]
  - Asthenia [Unknown]
  - Swelling face [Unknown]
  - Flushing [Recovered/Resolved]
  - Dyspnoea [Unknown]
  - Lip disorder [Unknown]
